FAERS Safety Report 4970229-2 (Version None)
Quarter: 2006Q2

REPORT INFORMATION
  Report Type: 
  Country: None (occurrence: None)
  Receive Date: 20060412
  Receipt Date: 20060330
  Transmission Date: 20061013
  Serious: Yes (Death)
  Sender: FDA-Public Use
  Company Number: JP-JNJFOC-20060307264

PATIENT
  Age: 71 Year
  Sex: Female

DRUGS (10)
  1. OFLOCET [Suspect]
     Route: 048
     Dates: start: 20050901, end: 20050906
  2. OFLOCET [Suspect]
     Indication: URINARY TRACT INFECTION
     Route: 048
     Dates: start: 20050901, end: 20050906
  3. CLAMOXYL [Suspect]
     Route: 048
     Dates: start: 20050901, end: 20050906
  4. CLAMOXYL [Suspect]
     Indication: URINARY TRACT INFECTION
     Route: 048
     Dates: start: 20050901, end: 20050906
  5. FERRIPROX [Suspect]
     Route: 048
  6. ROVAMYCINE [Concomitant]
     Indication: FURUNCLE
     Route: 048
     Dates: start: 20050917
  7. TAZOCILLINE [Concomitant]
     Route: 048
     Dates: start: 20050901, end: 20050901
  8. TAZOCILLINE [Concomitant]
     Route: 048
     Dates: start: 20050901, end: 20050901
  9. AMIKLIN [Concomitant]
     Dates: start: 20050901, end: 20050901
  10. PERFALGAN [Concomitant]
     Dates: start: 20050901, end: 20050901

REACTIONS (13)
  - AGRANULOCYTOSIS [None]
  - ATRIAL FIBRILLATION [None]
  - BONE MARROW MYELOGRAM ABNORMAL [None]
  - DIZZINESS [None]
  - ERYSIPELAS [None]
  - FURUNCLE [None]
  - HYPOTENSION [None]
  - HYPOVOLAEMIC SHOCK [None]
  - LOSS OF CONSCIOUSNESS [None]
  - LYMPHOEDEMA [None]
  - ORAL CANDIDIASIS [None]
  - PYREXIA [None]
  - SEPSIS [None]
